FAERS Safety Report 17567018 (Version 3)
Quarter: 2022Q3

REPORT INFORMATION
  Report Type: Spontaneous
  Country: FR (occurrence: FR)
  Receive Date: 20200320
  Receipt Date: 20220912
  Transmission Date: 20221027
  Serious: Yes (Hospitalization, Other)
  Sender: FDA-Public Use
  Company Number: None

PATIENT

DRUGS (33)
  1. CETIRIZINE HYDROCHLORIDE [Suspect]
     Active Substance: CETIRIZINE HYDROCHLORIDE
     Indication: Allergy prophylaxis
     Dosage: 10 MG, QD, 10 MILLIGRAM, DAILY(0-0-1 )
     Route: 048
     Dates: start: 20190606
  2. CEFTRIAXONE [Suspect]
     Active Substance: CEFTRIAXONE
     Indication: Sepsis
     Dosage: 1 G, QD
     Route: 042
     Dates: start: 20190607, end: 20190613
  3. INNOHEP [Suspect]
     Active Substance: TINZAPARIN SODIUM
     Indication: Thrombosis
     Dosage: 17000 IU, QD
     Route: 058
     Dates: start: 20190505, end: 20190520
  4. DAPTOMYCIN [Suspect]
     Active Substance: DAPTOMYCIN
     Indication: Septic shock
     Dosage: 850 MG, QD
     Route: 042
     Dates: start: 20190701, end: 20190704
  5. DAPTOMYCIN [Suspect]
     Active Substance: DAPTOMYCIN
     Dosage: 20 MG
     Dates: start: 20190515
  6. COLCHICINE [Suspect]
     Active Substance: COLCHICINE
     Indication: Gout
     Dosage: 2 MG, QD
     Route: 048
     Dates: start: 20190615, end: 20190617
  7. AMIKACIN [Suspect]
     Active Substance: AMIKACIN
     Indication: Sepsis
     Dosage: 1500 MG, QD
     Route: 042
     Dates: start: 20190604, end: 20190604
  8. POLARAMINE [Suspect]
     Active Substance: DEXCHLORPHENIRAMINE MALEATE
     Indication: Allergy prophylaxis
     Dosage: 5 MG, QD
     Route: 042
     Dates: start: 20190606, end: 20190606
  9. REMIFENTANIL [Suspect]
     Active Substance: REMIFENTANIL
     Indication: Anaesthesia
     Dosage: 796 ?G, QD
     Route: 042
     Dates: start: 20190515, end: 20190515
  10. MAGNESIUM PIDOLATE [Suspect]
     Active Substance: MAGNESIUM PIDOLATE
     Indication: Magnesium deficiency
     Dosage: 2 DF, QD
     Route: 048
     Dates: start: 20190618, end: 20190705
  11. LOVENOX [Suspect]
     Active Substance: ENOXAPARIN SODIUM
     Indication: Thrombosis prophylaxis
     Dosage: 4000 IU, QD
     Route: 058
     Dates: start: 20190614
  12. TRAMADOL [Suspect]
     Active Substance: TRAMADOL
     Indication: Pain
     Dosage: 50 MG, AS NEEDED (PRN)
     Route: 048
     Dates: start: 20190520, end: 20190602
  13. MORPHINE SULFATE [Suspect]
     Active Substance: MORPHINE SULFATE
     Indication: Pain
     Dosage: 15 MG, QD
     Route: 048
     Dates: start: 20190629, end: 20190705
  14. PIPERACILLIN SODIUM\TAZOBACTAM SODIUM [Suspect]
     Active Substance: PIPERACILLIN SODIUM\TAZOBACTAM SODIUM
     Indication: Sepsis
     Dosage: 12 G, QD (1-1-1)
     Route: 042
     Dates: start: 20190406, end: 20190607
  15. PIPERACILLIN SODIUM\TAZOBACTAM SODIUM [Suspect]
     Active Substance: PIPERACILLIN SODIUM\TAZOBACTAM SODIUM
     Dosage: 12 G, QD (1-1-1)
     Route: 042
     Dates: start: 20190604, end: 20190607
  16. PIPERACILLIN SODIUM\TAZOBACTAM SODIUM [Suspect]
     Active Substance: PIPERACILLIN SODIUM\TAZOBACTAM SODIUM
     Dosage: 12 G, QD
     Route: 042
     Dates: start: 20190614, end: 20190624
  17. PROPOFOL [Suspect]
     Active Substance: PROPOFOL
     Indication: Anaesthesia
     Dosage: 1088 MG, QD
     Route: 042
     Dates: start: 20190515, end: 20190515
  18. PROPOFOL [Suspect]
     Active Substance: PROPOFOL
     Indication: Pain
  19. NEFOPAM [Suspect]
     Active Substance: NEFOPAM
     Indication: Pain
     Dosage: 20 MG
     Route: 042
     Dates: start: 20190515
  20. OCTREOTIDE [Suspect]
     Active Substance: OCTREOTIDE
     Indication: Gastrointestinal haemorrhage
     Dosage: 600 ?G, QD
     Route: 042
     Dates: start: 20190605, end: 20190607
  21. METHYLPREDNISOLONE HEMISUCCINATE [Suspect]
     Active Substance: METHYLPREDNISOLONE HEMISUCCINATE
     Indication: Allergy prophylaxis
     Dosage: 60 MG, QD
     Route: 042
     Dates: start: 20190606, end: 20190606
  22. PANTOPRAZOLE [Suspect]
     Active Substance: PANTOPRAZOLE
     Indication: Prophylaxis against gastrointestinal ulcer
     Dosage: 20 MG
     Route: 065
     Dates: start: 20190505
  23. TRAMADOL HYDROCHLORIDE [Suspect]
     Active Substance: TRAMADOL HYDROCHLORIDE
     Indication: Pain
     Dosage: 200 MG, QD
     Route: 048
     Dates: start: 20190515, end: 20190515
  24. VITAMIN K1 [Suspect]
     Active Substance: PHYTONADIONE
     Indication: Prothrombin time ratio decreased
     Dosage: 20 MG, QD
     Route: 042
     Dates: start: 20190604, end: 20190609
  25. VANCOMYCIN [Suspect]
     Active Substance: VANCOMYCIN
     Indication: Sepsis
     Dosage: 3080 MG, QD
     Route: 042
     Dates: start: 20190605, end: 20190628
  26. VANCOMYCIN [Suspect]
     Active Substance: VANCOMYCIN
     Indication: Pain
  27. PHYTONADIONE [Suspect]
     Active Substance: PHYTONADIONE
     Indication: Prothrombin time ratio decreased
     Dosage: 20 MG, QD
     Route: 042
     Dates: start: 20190604, end: 20190609
  28. PROPOFOL [Suspect]
     Active Substance: PROPOFOL
     Indication: Pain
     Dosage: 1088 MG, QD
     Route: 065
     Dates: start: 20190515, end: 20190515
  29. PROPOFOL [Suspect]
     Active Substance: PROPOFOL
     Indication: Anaesthesia
  30. MAGNESIUM [Suspect]
     Active Substance: MAGNESIUM
     Indication: Magnesium deficiency
     Dosage: 1 DF, 1X/DAY
     Route: 065
  31. CETIRIZINE [Suspect]
     Active Substance: CETIRIZINE HYDROCHLORIDE
     Indication: Prophylaxis against gastrointestinal ulcer
     Dosage: 10 MG, QD
     Route: 065
     Dates: start: 20190606
  32. KARDEGIC [Concomitant]
     Active Substance: ASPIRIN DL-LYSINE
     Indication: Ischaemic cardiomyopathy
     Dosage: 75 MG, QD (0-1-0)
     Route: 048
  33. DOLIPRANE [Concomitant]
     Active Substance: ACETAMINOPHEN
     Indication: Pain
     Dosage: 1 G
     Route: 048

REACTIONS (1)
  - Drug reaction with eosinophilia and systemic symptoms [Not Recovered/Not Resolved]

NARRATIVE: CASE EVENT DATE: 20190701
